FAERS Safety Report 16709945 (Version 1)
Quarter: 2019Q3

REPORT INFORMATION
  Report Type: Spontaneous
  Country: US (occurrence: US)
  Receive Date: 20190816
  Receipt Date: 20190816
  Transmission Date: 20191004
  Serious: Yes (Hospitalization)
  Sender: FDA-Public Use
  Company Number: US-PFIZER INC-9825155

PATIENT
  Age: 73 Year
  Sex: Male

DRUGS (6)
  1. ERYTHROMYCIN BASE [Interacting]
     Active Substance: ERYTHROMYCIN
     Indication: ANTIBIOTIC PROPHYLAXIS
     Dosage: UNK UNK, 2X/DAY (2 HOURS BEFORE AND 1 HOUR AFTER EACH PROCEDURE IN DOSES OF 1G AND 0.5G)
     Route: 048
  2. ATENOLOL. [Concomitant]
     Active Substance: ATENOLOL
     Dosage: 10 MG, DAILY
     Route: 048
  3. FUROSEMIDE. [Suspect]
     Active Substance: FUROSEMIDE
     Indication: HYPERTENSION
     Dosage: 20 MG, DAILY
     Route: 048
  4. LOVASTATIN. [Interacting]
     Active Substance: LOVASTATIN
     Indication: HYPERCHOLESTEROLAEMIA
     Dosage: 20 MG, DAILY
     Route: 048
  5. BABY ASPIRIN [Concomitant]
     Active Substance: ASPIRIN
     Dosage: 1 DF, DAILY
     Route: 048
  6. PROCARDIA XL [Suspect]
     Active Substance: NIFEDIPINE
     Dosage: 30 MG, DAILY
     Route: 048

REACTIONS (14)
  - Pancreatitis [Unknown]
  - Rash macular [Recovering/Resolving]
  - Rhabdomyolysis [Recovered/Resolved]
  - Sepsis [Recovered/Resolved]
  - Carotid bruit [Unknown]
  - Vein disorder [Unknown]
  - Urine output decreased [Recovered/Resolved]
  - Acute kidney injury [Recovered/Resolved]
  - Livedo reticularis [Recovered/Resolved]
  - Multiple organ dysfunction syndrome [Recovered/Resolved]
  - Drug interaction [Recovered/Resolved]
  - Ileus [Recovered/Resolved]
  - Rales [Unknown]
  - Gastrointestinal disorder [Recovered/Resolved]
